FAERS Safety Report 11089306 (Version 1)
Quarter: 2015Q2

REPORT INFORMATION
  Report Type: Spontaneous
  Country: US (occurrence: US)
  Receive Date: 20150505
  Receipt Date: 20150505
  Transmission Date: 20150821
  Serious: No
  Sender: FDA-Public Use
  Company Number: US-ASTRAZENECA-2015SE39550

PATIENT
  Sex: Female

DRUGS (1)
  1. NEXIUM [Suspect]
     Active Substance: ESOMEPRAZOLE MAGNESIUM
     Indication: EATING DISORDER
     Dosage: UNKNOWN
     Route: 048

REACTIONS (4)
  - Intentional product misuse [Unknown]
  - Oropharyngeal discomfort [Unknown]
  - Weight decreased [Unknown]
  - Drug dose omission [Unknown]
